FAERS Safety Report 4998615-5 (Version None)
Quarter: 2006Q2

REPORT INFORMATION
  Report Type: 
  Country: None (occurrence: None)
  Receive Date: 20060508
  Receipt Date: 20060427
  Transmission Date: 20061013
  Serious: Yes (Disabling)
  Sender: FDA-Public Use
  Company Number: 2006-04-2263

PATIENT
  Age: 60 Year
  Sex: Male
  Weight: 110 kg

DRUGS (1)
  1. PEG-INTRON [Suspect]
     Indication: MALIGNANT MELANOMA
     Dosage: 50 MCG
     Dates: start: 20040420, end: 20060307

REACTIONS (3)
  - DEMYELINATION [None]
  - PARAESTHESIA [None]
  - POLYNEUROPATHY [None]
